FAERS Safety Report 5722237-1 (Version None)
Quarter: 2008Q2

REPORT INFORMATION
  Report Type: 
  Country: None (occurrence: None)
  Receive Date: 20080424
  Receipt Date: 20080411
  Transmission Date: 20081010
  Serious: Yes (Disabling)
  Sender: FDA-Public Use
  Company Number: 2006001986

PATIENT
  Age: 55 Year
  Sex: Female

DRUGS (1)
  1. TARCEVA [Suspect]
     Indication: NON-SMALL CELL LUNG CANCER
     Dates: start: 20060915

REACTIONS (8)
  - ACNE [None]
  - COLOUR BLINDNESS ACQUIRED [None]
  - DEMYELINATION [None]
  - DIARRHOEA [None]
  - IMPAIRED DRIVING ABILITY [None]
  - OPTIC NERVE DISORDER [None]
  - RASH [None]
  - VISUAL ACUITY REDUCED [None]
